FAERS Safety Report 9767368 (Version 1)
Quarter: 2013Q4

REPORT INFORMATION
  Report Type: Spontaneous
  Country: DE (occurrence: DE)
  Receive Date: 20131217
  Receipt Date: 20131217
  Transmission Date: 20140711
  Serious: Yes (Life-Threatening, Hospitalization)
  Sender: FDA-Public Use
  Company Number: DE-SA-2013SA128586

PATIENT
  Age: 83 Year
  Sex: Male
  Weight: 78 kg

DRUGS (4)
  1. MULTAQ [Suspect]
     Indication: ATRIAL FIBRILLATION
     Dosage: DAILY DOSE: 400 MG MILLGRAM(S) EVERY DAYS
     Route: 048
     Dates: start: 20121011, end: 20121022
  2. XARELTO [Concomitant]
     Route: 048
     Dates: start: 20121011
  3. RAMIPRIL [Concomitant]
     Route: 048
     Dates: start: 20121011
  4. TOREM [Concomitant]
     Route: 048
     Dates: start: 20121011

REACTIONS (3)
  - Pulmonary oedema [Recovered/Resolved]
  - Dyspnoea [Recovered/Resolved]
  - Respiratory failure [Recovered/Resolved]
